FAERS Safety Report 9850509 (Version 3)
Quarter: 2015Q1

REPORT INFORMATION
  Report Type: Spontaneous
  Country: US (occurrence: US)
  Receive Date: 20140128
  Receipt Date: 20150108
  Transmission Date: 20150721
  Serious: No
  Sender: FDA-Public Use
  Company Number: US-ROXANE LABORATORIES, INC.-2014-RO-00087RO

PATIENT
  Sex: Female

DRUGS (2)
  1. BUTORPHANOL [Suspect]
     Active Substance: BUTORPHANOL
     Route: 045
  2. BUTORPHANOL [Suspect]
     Active Substance: BUTORPHANOL
     Indication: PAIN
     Route: 045

REACTIONS (2)
  - Drug ineffective [Unknown]
  - Product quality issue [Unknown]
